FAERS Safety Report 20964145 (Version 1)
Quarter: 2022Q2

REPORT INFORMATION
  Report Type: Spontaneous
  Country: US (occurrence: None)
  Receive Date: 20220615
  Receipt Date: 20220615
  Transmission Date: 20220720
  Serious: No
  Sender: FDA-Public Use
  Company Number: None

PATIENT
  Age: 56 Year
  Sex: Female

DRUGS (1)
  1. CAPLYTA [Suspect]
     Active Substance: LUMATEPERONE
     Indication: Schizoaffective disorder
     Dosage: FREQUENCY : DAILY;?
     Route: 048
     Dates: start: 20220204, end: 20220510

REACTIONS (6)
  - Diarrhoea [None]
  - Gait disturbance [None]
  - Clumsiness [None]
  - Dysstasia [None]
  - Gait disturbance [None]
  - Posture abnormal [None]

NARRATIVE: CASE EVENT DATE: 20220210
